FAERS Safety Report 7999567-6 (Version None)
Quarter: 2011Q4

REPORT INFORMATION
  Report Type: 
  Country: None (occurrence: None)
  Receive Date: 20111221
  Receipt Date: 20111216
  Transmission Date: 20120403
  Serious: Yes (Hospitalization, Disabling, Other)
  Sender: FDA-Public Use
  Company Number: US-PFIZER INC-2011151418

PATIENT
  Sex: Female

DRUGS (1)
  1. CHANTIX [Suspect]
     Indication: SMOKING CESSATION THERAPY
     Dosage: UNK
     Dates: start: 20070807, end: 20070101

REACTIONS (6)
  - NIGHTMARE [None]
  - INTENTIONAL OVERDOSE [None]
  - DEPRESSION [None]
  - DECREASED APPETITE [None]
  - SUICIDE ATTEMPT [None]
  - ANXIETY [None]
